FAERS Safety Report 14155943 (Version 2)
Quarter: 2017Q4

REPORT INFORMATION
  Report Type: Spontaneous
  Country: CN (occurrence: CN)
  Receive Date: 20171103
  Receipt Date: 20171216
  Transmission Date: 20180321
  Serious: Yes (Life-Threatening, Other)
  Sender: FDA-Public Use
  Company Number: CN-SUN PHARMACEUTICAL INDUSTRIES LTD-2017R1-153912

PATIENT
  Age: 40 Year
  Sex: Female

DRUGS (6)
  1. IFOSFAMIDE. [Suspect]
     Active Substance: IFOSFAMIDE
     Indication: ANGIOCENTRIC LYMPHOMA
     Dosage: REPEATED EVERY 28 DAYS (2 CYCLE)
     Route: 065
     Dates: start: 2014
  2. METHYLPREDNISOLONE. [Concomitant]
     Active Substance: METHYLPREDNISOLONE
     Indication: PRODUCT USED FOR UNKNOWN INDICATION
     Dosage: 50 MG, DAILY
     Route: 065
     Dates: start: 2014
  3. METHOTREXATE. [Suspect]
     Active Substance: METHOTREXATE
     Indication: ANGIOCENTRIC LYMPHOMA
     Dosage: REPEATED EVERY 28 DAYS (2 CYCLE)
     Route: 065
     Dates: start: 2014
  4. ETOPOSIDE. [Suspect]
     Active Substance: ETOPOSIDE
     Indication: ANGIOCENTRIC LYMPHOMA
     Dosage: REPEATED EVERY 28 DAYS (2 CYCLE)
     Route: 065
     Dates: start: 2014
  5. DEXAMETHASONE. [Suspect]
     Active Substance: DEXAMETHASONE
     Indication: ANGIOCENTRIC LYMPHOMA
     Dosage: REPEATED EVERY 28 DAYS (2 CYCLE)
     Route: 065
     Dates: start: 2014
  6. ASPARAGINASE [Suspect]
     Active Substance: ASPARAGINASE
     Indication: ANGIOCENTRIC LYMPHOMA
     Dosage: REPEATED EVERY 28 DAYS (2 CYCLE)
     Route: 065
     Dates: start: 2014

REACTIONS (3)
  - Infection [Unknown]
  - Neutropenia [Unknown]
  - Toxicity to various agents [Unknown]
